FAERS Safety Report 21538193 (Version 2)
Quarter: 2023Q1

REPORT INFORMATION
  Report Type: Report from Study
  Country: US (occurrence: US)
  Receive Date: 20221101
  Receipt Date: 20230126
  Transmission Date: 20230418
  Serious: No
  Sender: FDA-Public Use
  Company Number: US-ABBVIE-22K-163-4471165-00

PATIENT
  Age: 48 Year
  Sex: Male

DRUGS (3)
  1. SKYRIZI [Suspect]
     Active Substance: RISANKIZUMAB-RZAA
     Indication: Psoriasis
     Route: 058
     Dates: start: 20221103
  2. SKYRIZI [Suspect]
     Active Substance: RISANKIZUMAB-RZAA
     Dosage: WEEK 4, FREQUENCY: ONE IN ONCE
     Route: 058
     Dates: start: 20220811, end: 20220811
  3. SKYRIZI [Suspect]
     Active Substance: RISANKIZUMAB-RZAA
     Dosage: WEEK 0, FREQUENCY: ONE IN ONCE
     Route: 058
     Dates: start: 20220714, end: 20220714

REACTIONS (10)
  - Psoriasis [Not Recovered/Not Resolved]
  - Pain [Not Recovered/Not Resolved]
  - Fatigue [Unknown]
  - Medication error [Unknown]
  - Tenderness [Unknown]
  - Hyperhidrosis [Unknown]
  - Productive cough [Unknown]
  - Pyrexia [Unknown]
  - Chills [Unknown]
  - Influenza [Unknown]

NARRATIVE: CASE EVENT DATE: 20220714
